FAERS Safety Report 8455473-4 (Version None)
Quarter: 2012Q2

REPORT INFORMATION
  Report Type: 
  Country: None (occurrence: None)
  Receive Date: 20120621
  Receipt Date: 20120612
  Transmission Date: 20120825
  Serious: Yes (Other)
  Sender: FDA-Public Use
  Company Number: CA-JNJFOC-20120605446

PATIENT
  Sex: Male
  Weight: 62 kg

DRUGS (6)
  1. REMICADE [Suspect]
     Indication: CROHN'S DISEASE
     Route: 042
     Dates: start: 20110908
  2. REMICADE [Suspect]
     Route: 042
     Dates: start: 20120607
  3. REMICADE [Suspect]
     Route: 042
     Dates: start: 20120217
  4. BENADRYL [Concomitant]
     Indication: PREMEDICATION
     Route: 048
  5. ACETAMINOPHEN [Concomitant]
     Indication: PREMEDICATION
     Route: 048
  6. UNKNOWN MEDICATION [Concomitant]
     Route: 065

REACTIONS (2)
  - DIARRHOEA [None]
  - WEIGHT INCREASED [None]
